FAERS Safety Report 18704947 (Version 1)
Quarter: 2021Q1

REPORT INFORMATION
  Report Type: Spontaneous
  Country: US (occurrence: US)
  Receive Date: 20210105
  Receipt Date: 20210105
  Transmission Date: 20210419
  Serious: Yes (Other)
  Sender: FDA-Public Use
  Company Number: US-ASTRAZENECA-2020SF66221

PATIENT
  Sex: Female

DRUGS (5)
  1. FASLODEX [Suspect]
     Active Substance: FULVESTRANT
     Route: 030
  2. ARIMIDEX [Suspect]
     Active Substance: ANASTROZOLE
     Route: 048
  3. AROMASIN [Suspect]
     Active Substance: EXEMESTANE
     Route: 065
  4. TAMOXIFEN [Suspect]
     Active Substance: TAMOXIFEN
     Route: 048
  5. NEULASTA [Concomitant]
     Active Substance: PEGFILGRASTIM

REACTIONS (8)
  - Metastases to skin [Unknown]
  - Breast mass [Unknown]
  - Bone density decreased [Recovering/Resolving]
  - Red blood cell abnormality [Unknown]
  - Drug intolerance [Unknown]
  - Back pain [Recovering/Resolving]
  - Drug ineffective [Unknown]
  - Breast neoplasm [Unknown]
